FAERS Safety Report 20835304 (Version 1)
Quarter: 2022Q2

REPORT INFORMATION
  Report Type: Spontaneous
  Country: LK (occurrence: LK)
  Receive Date: 20220516
  Receipt Date: 20220516
  Transmission Date: 20220721
  Serious: Yes (Other)
  Sender: FDA-Public Use
  Company Number: LK-BAYER-2021-203586

PATIENT
  Age: 30 Year
  Sex: Female

DRUGS (2)
  1. LEVONORGESTREL [Suspect]
     Active Substance: LEVONORGESTREL
     Indication: Product used for unknown indication
     Dosage: UNK
     Route: 059
     Dates: start: 20190706
  2. COVID-19 VACCINE MODERNA (COVID-19 VACCINE MRNA (MRNA 1273)) [Concomitant]
     Indication: Product used for unknown indication
     Dates: start: 20210824

REACTIONS (2)
  - Genital haemorrhage [Not Recovered/Not Resolved]
  - Headache [Not Recovered/Not Resolved]

NARRATIVE: CASE EVENT DATE: 20210801
